FAERS Safety Report 26105236 (Version 1)
Quarter: 2025Q4

REPORT INFORMATION
  Report Type: Report from Study
  Country: US (occurrence: None)
  Receive Date: 20251201
  Receipt Date: 20251201
  Transmission Date: 20260117
  Serious: Yes (Hospitalization)
  Sender: AUROBINDO
  Company Number: US-APOTEX-2014AP004511

PATIENT
  Age: 19 Month

DRUGS (1)
  1. LISINOPRIL [Suspect]
     Active Substance: LISINOPRIL
     Indication: Accidental exposure to product by child
     Dosage: UNK

REACTIONS (2)
  - Accidental exposure to product by child [Unknown]
  - Hypotension [Unknown]
